FAERS Safety Report 10348927 (Version 1)
Quarter: 2014Q3

REPORT INFORMATION
  Report Type: Spontaneous
  Country: GR (occurrence: GR)
  Receive Date: 20140729
  Receipt Date: 20140729
  Transmission Date: 20150326
  Serious: Yes (Hospitalization, Other)
  Sender: FDA-Public Use
  Company Number: GR-GILEAD-2014-0110460

PATIENT
  Sex: Female
  Weight: 70 kg

DRUGS (5)
  1. SEROPRAM [Suspect]
     Active Substance: CITALOPRAM HYDROBROMIDE
     Indication: DEPRESSION
     Dosage: UNK
     Route: 065
     Dates: start: 2013, end: 2014
  2. GREPID [Concomitant]
  3. SALOSPIR [Concomitant]
     Active Substance: ASPIRIN\CAFFEINE
  4. ATROST [Concomitant]
     Active Substance: ATORVASTATIN CALCIUM
  5. RANOLAZINE [Suspect]
     Active Substance: RANOLAZINE
     Indication: ANGINA PECTORIS
     Dosage: 750 MG, BID
     Route: 065
     Dates: start: 2013, end: 2014

REACTIONS (2)
  - Electrocardiogram QT prolonged [None]
  - Torsade de pointes [Recovered/Resolved]

NARRATIVE: CASE EVENT DATE: 2014
